FAERS Safety Report 4610613-X (Version None)
Quarter: 2005Q1

REPORT INFORMATION
  Report Type: 
  Country: None (occurrence: None)
  Receive Date: 20050316
  Receipt Date: 20050310
  Transmission Date: 20050727
  Serious: Yes (Other)
  Sender: FDA-Public Use
  Company Number: 004337

PATIENT
  Age: 44 Year
  Sex: Female
  Weight: 90.7 kg

DRUGS (6)
  1. MEFLOQUINE HYDROCHLORIDE (MEFLOQUINE HYDROCHLORIDE) TABLET, 250 MG [Suspect]
     Indication: MALARIA
     Dosage: SEE IMAGE
     Route: 048
     Dates: start: 20050307, end: 20050307
  2. MEFLOQUINE HYDROCHLORIDE (MEFLOQUINE HYDROCHLORIDE) TABLET, 250 MG [Suspect]
     Indication: MALARIA PROPHYLAXIS
     Dosage: SEE IMAGE
     Route: 048
     Dates: start: 20050307, end: 20050307
  3. MEFLOQUINE HYDROCHLORIDE (MEFLOQUINE HYDROCHLORIDE) TABLET, 250 MG [Suspect]
     Indication: MALARIA
     Dosage: SEE IMAGE
     Route: 048
  4. MEFLOQUINE HYDROCHLORIDE (MEFLOQUINE HYDROCHLORIDE) TABLET, 250 MG [Suspect]
     Indication: MALARIA PROPHYLAXIS
     Dosage: SEE IMAGE
     Route: 048
  5. ZOLOFT [Concomitant]
  6. TOPROL-XL [Concomitant]

REACTIONS (6)
  - APHASIA [None]
  - ASTHENIA [None]
  - DIFFICULTY IN WALKING [None]
  - DIZZINESS [None]
  - MYALGIA [None]
  - PYREXIA [None]
